FAERS Safety Report 10736477 (Version 1)
Quarter: 2015Q1

REPORT INFORMATION
  Report Type: Spontaneous
  Country: US (occurrence: US)
  Receive Date: 20150126
  Receipt Date: 20150126
  Transmission Date: 20150721
  Serious: Yes (Other)
  Sender: FDA-Public Use
  Company Number: US-ASTRAZENECA-2015SE05467

PATIENT
  Sex: Female

DRUGS (2)
  1. GENERIC MEDICATIONS [Concomitant]
     Active Substance: UNSPECIFIED INGREDIENT
  2. ATACAND [Suspect]
     Active Substance: CANDESARTAN CILEXETIL
     Route: 048

REACTIONS (2)
  - Cerebrovascular accident [Unknown]
  - Blood pressure inadequately controlled [Unknown]
